FAERS Safety Report 22608632 (Version 1)
Quarter: 2023Q2

REPORT INFORMATION
  Report Type: Spontaneous
  Country: US (occurrence: US)
  Receive Date: 20230616
  Receipt Date: 20230616
  Transmission Date: 20230722
  Serious: No
  Sender: FDA-Public Use
  Company Number: US-BRISTOL-MYERS SQUIBB COMPANY-2023-084883

PATIENT
  Age: 27 Year
  Sex: Male

DRUGS (1)
  1. SPRYCEL [Suspect]
     Active Substance: DASATINIB
     Indication: Acute leukaemia
     Route: 048
     Dates: start: 202305

REACTIONS (2)
  - Fatigue [Recovered/Resolved]
  - Myalgia [Recovered/Resolved]
